FAERS Safety Report 12609009 (Version 2)
Quarter: 2016Q4

REPORT INFORMATION
  Report Type: Spontaneous
  Country: US (occurrence: US)
  Receive Date: 20160731
  Receipt Date: 20161228
  Transmission Date: 20170207
  Serious: Yes (Other)
  Sender: FDA-Public Use
  Company Number: US-ALLERGAN-1664160US

PATIENT
  Age: 81 Year
  Sex: Male

DRUGS (1)
  1. RAPAFLO [Suspect]
     Active Substance: SILODOSIN
     Indication: BENIGN PROSTATIC HYPERPLASIA
     Dosage: 8 MG, QD
     Route: 048
     Dates: start: 20160709

REACTIONS (3)
  - Ureteral catheterisation [Not Recovered/Not Resolved]
  - Urinary retention [Not Recovered/Not Resolved]
  - Drug ineffective [Unknown]

NARRATIVE: CASE EVENT DATE: 20160709
